FAERS Safety Report 10272471 (Version 1)
Quarter: 2014Q2

REPORT INFORMATION
  Report Type: Spontaneous
  Country: GB (occurrence: None)
  Receive Date: 20140627
  Receipt Date: 20140627
  Transmission Date: 20141212
  Serious: Yes (Other)
  Sender: FDA-Public Use
  Company Number: GB-DEXPHARM-20140341

PATIENT
  Age: 48 Year
  Sex: Male

DRUGS (1)
  1. OMEPRAZOLE [Suspect]
     Indication: GASTRITIS
     Route: 048
     Dates: start: 20140511, end: 20140525

REACTIONS (5)
  - Anxiety [None]
  - Depressed mood [None]
  - Influenza like illness [None]
  - Myalgia [None]
  - Insomnia [None]
